FAERS Safety Report 11754737 (Version 1)
Quarter: 2015Q4

REPORT INFORMATION
  Report Type: Spontaneous
  Country: US (occurrence: US)
  Receive Date: 20151119
  Receipt Date: 20151119
  Transmission Date: 20160304
  Serious: Yes (Other)
  Sender: FDA-Public Use
  Company Number: US-BAUSCH-BL-2015-027124

PATIENT
  Age: 67 Year
  Sex: Female

DRUGS (4)
  1. MIDAZOLAM [Concomitant]
     Active Substance: MIDAZOLAM\MIDAZOLAM HYDROCHLORIDE
     Indication: PRODUCT USED FOR UNKNOWN INDICATION
  2. FENTANYL. [Concomitant]
     Active Substance: FENTANYL
     Indication: PRODUCT USED FOR UNKNOWN INDICATION
     Dosage: 50 MCG
  3. ATROPINE. [Suspect]
     Active Substance: ATROPINE
     Indication: BRADYCARDIA
     Dosage: TOTAL DOSE OF 2 MG IN 0.5 MG INCREMENTS
     Route: 065
  4. METHOHEXITAL [Concomitant]
     Active Substance: METHOHEXITAL
     Indication: PRODUCT USED FOR UNKNOWN INDICATION

REACTIONS (2)
  - Delirium [Recovering/Resolving]
  - Toxicity to various agents [Recovering/Resolving]
